FAERS Safety Report 13962930 (Version 1)
Quarter: 2017Q3

REPORT INFORMATION
  Report Type: Spontaneous
  Country: DE (occurrence: DE)
  Receive Date: 20170913
  Receipt Date: 20170913
  Transmission Date: 20171128
  Serious: Yes (Hospitalization, Other)
  Sender: FDA-Public Use
  Company Number: DE-AMGEN-DEUSP2017137198

PATIENT
  Sex: Female

DRUGS (17)
  1. VINCRISTINE [Suspect]
     Active Substance: VINCRISTINE
     Indication: MALIGNANT LYMPHOID NEOPLASM
     Dosage: 2 MG, Q2WK (1 IN 14 D)
     Route: 042
     Dates: start: 20140411, end: 20140627
  2. SITAGLIPTIN [Concomitant]
     Active Substance: SITAGLIPTIN
     Indication: DIABETES MELLITUS
     Dosage: 25 MG, UNK
     Route: 048
  3. ACICLOVIR [Concomitant]
     Active Substance: ACYCLOVIR
     Dosage: 400 MG, QID
     Route: 048
     Dates: start: 201404
  4. SULFAMETHOXAZOLE AND TRIMETHOPRIM [Concomitant]
     Active Substance: SULFAMETHOXAZOLE\TRIMETHOPRIM
     Dosage: 960 MG, 2 TIMES/WK
     Route: 048
     Dates: start: 201404
  5. INSULIN GLARGINE [Concomitant]
     Active Substance: INSULIN GLARGINE
     Indication: DIABETES MELLITUS
     Dosage: 20 IU, QD
     Route: 058
  6. SALBUTAMOL SULFATE [Concomitant]
     Active Substance: ALBUTEROL SULFATE
     Indication: INFLUENZA LIKE ILLNESS
     Dosage: UNK, TID (3 HUB)
     Route: 055
     Dates: start: 20140610
  7. ALLOPURINOL. [Concomitant]
     Active Substance: ALLOPURINOL
     Dosage: 300 MG, QD
     Route: 048
     Dates: start: 201404
  8. CYCLOPHOSPHAMIDE. [Suspect]
     Active Substance: CYCLOPHOSPHAMIDE
     Indication: MALIGNANT LYMPHOID NEOPLASM
     Dosage: 1418 MG, Q2WK (1 IN 14 D)
     Route: 042
     Dates: start: 20140411, end: 20140627
  9. HYDROCHLOROTHIAZIDE. [Concomitant]
     Active Substance: HYDROCHLOROTHIAZIDE
     Indication: OEDEMA
     Dosage: 12.5 MG, QD
     Route: 048
     Dates: start: 20140620
  10. LEVOFLOXACIN. [Concomitant]
     Active Substance: LEVOFLOXACIN
     Indication: PROPHYLAXIS
     Dosage: 500 MG, UNK
     Route: 048
     Dates: start: 201404
  11. PREDNISONE. [Suspect]
     Active Substance: PREDNISONE
     Indication: MALIGNANT LYMPHOID NEOPLASM
     Dosage: 100 MG, Q2WK (1 IN 14 D)
     Route: 048
     Dates: start: 20140405, end: 20140627
  12. AMPHOTERICIN B. [Concomitant]
     Active Substance: AMPHOTERICIN B
     Indication: PROPHYLAXIS
     Dosage: 1 DF, TID
     Route: 048
  13. PEGFILGRASTIM [Suspect]
     Active Substance: PEGFILGRASTIM
     Indication: MALIGNANT LYMPHOID NEOPLASM
     Dosage: 6 MG, Q2WK (1 IN 14 D) DAY 5 OF EACH CYCLE
     Route: 058
     Dates: start: 20140414
  14. RITUXIMAB. [Suspect]
     Active Substance: RITUXIMAB
     Indication: MALIGNANT LYMPHOID NEOPLASM
     Dosage: 710 MG, Q2WK (1 IN 14 D)
     Route: 042
     Dates: start: 20140410
  15. DOXORUBICIN [Suspect]
     Active Substance: DOXORUBICIN
     Indication: MALIGNANT LYMPHOID NEOPLASM
     Dosage: 95 MG, Q2WK (1 IN 14 D)
     Route: 042
     Dates: start: 20140411, end: 20140627
  16. LEVOTHYROXINE SODIUM. [Concomitant]
     Active Substance: LEVOTHYROXINE SODIUM
     Indication: HYPOTHYROIDISM
     Dosage: 150 MUG, UNK
     Route: 048
  17. INSULIN [Concomitant]
     Active Substance: INSULIN NOS
     Indication: DIABETES MELLITUS
     Dosage: UNK UNK, QD (DAILY DOSES DEPENDING ON BLOOD SUGAR VALUE
     Route: 058

REACTIONS (4)
  - Febrile neutropenia [Unknown]
  - Infection [Recovered/Resolved]
  - Febrile neutropenia [Recovered/Resolved]
  - Palmar-plantar erythrodysaesthesia syndrome [Recovered/Resolved]

NARRATIVE: CASE EVENT DATE: 20140430
